FAERS Safety Report 4856249-7 (Version None)
Quarter: 2005Q4

REPORT INFORMATION
  Report Type: 
  Country: None (occurrence: None)
  Receive Date: 20051214
  Receipt Date: 20051205
  Transmission Date: 20060501
  Serious: Yes (Other)
  Sender: FDA-Public Use
  Company Number: 2005165214

PATIENT
  Age: 62 Year
  Sex: Female
  Weight: 65 kg

DRUGS (1)
  1. NICORETTE [Suspect]
     Indication: SMOKING CESSATION THERAPY
     Dosage: 10 MG 2 CARTRIDGES, QD, INHALATION
     Route: 055
     Dates: start: 20050201, end: 20050801

REACTIONS (6)
  - DIARRHOEA [None]
  - EYE SWELLING [None]
  - GOITRE [None]
  - HYPERMETABOLISM [None]
  - MALAISE [None]
  - RASH [None]
